FAERS Safety Report 10013914 (Version 2)
Quarter: 2014Q2

REPORT INFORMATION
  Report Type: Spontaneous
  Country: CN (occurrence: CN)
  Receive Date: 20140316
  Receipt Date: 20140523
  Transmission Date: 20141212
  Serious: Yes (Other)
  Sender: FDA-Public Use
  Company Number: CN-JNJFOC-20140305874

PATIENT
  Age: 27 Year
  Sex: Female

DRUGS (2)
  1. DAKTARIN [Suspect]
     Route: 067
  2. DAKTARIN [Suspect]
     Indication: VULVOVAGINAL MYCOTIC INFECTION
     Route: 067
     Dates: start: 2012

REACTIONS (5)
  - Angioedema [Recovering/Resolving]
  - Pruritus generalised [Not Recovered/Not Resolved]
  - Pain [Recovered/Resolved]
  - Pelvic pain [Recovered/Resolved]
  - Discomfort [Recovering/Resolving]
